FAERS Safety Report 6858425-0 (Version None)
Quarter: 2010Q3

REPORT INFORMATION
  Report Type: 
  Country: None (occurrence: None)
  Receive Date: 20100719
  Receipt Date: 20080206
  Transmission Date: 20110219
  Serious: No
  Sender: FDA-Public Use
  Company Number: US-PFIZER INC-2008012878

PATIENT
  Sex: Male

DRUGS (4)
  1. CHANTIX [Suspect]
     Dates: start: 20080205
  2. REMERON [Concomitant]
  3. ZYPREXA [Concomitant]
  4. AMBIEN [Concomitant]

REACTIONS (3)
  - DIARRHOEA [None]
  - INSOMNIA [None]
  - SLEEP DISORDER [None]
